FAERS Safety Report 25761418 (Version 1)
Quarter: 2025Q3

REPORT INFORMATION
  Report Type: Spontaneous
  Country: US (occurrence: None)
  Receive Date: 20250903
  Receipt Date: 20250903
  Transmission Date: 20251020
  Serious: No
  Sender: FDA-CTU
  Company Number: None

PATIENT
  Age: 25 Year
  Sex: Female
  Weight: 43.2 kg

DRUGS (2)
  1. PAROXETINE HYDROCHLORIDE [Suspect]
     Active Substance: PAROXETINE HYDROCHLORIDE
     Indication: Major depression
     Dosage: OTHER QUANTITY : 0.5 TABLET(S)?FREQUENCY : DAILY?
     Route: 048
  2. PAROXETINE HYDROCHLORIDE [Suspect]
     Active Substance: PAROXETINE HYDROCHLORIDE
     Indication: Anxiety

REACTIONS (12)
  - Product use issue [None]
  - Drug withdrawal syndrome [None]
  - Malaise [None]
  - Crying [None]
  - Electric shock sensation [None]
  - Depression [None]
  - Self-injurious ideation [None]
  - Restless arm syndrome [None]
  - Derealisation [None]
  - Dissociation [None]
  - Impaired work ability [None]
  - Feeling abnormal [None]
